FAERS Safety Report 14665762 (Version 1)
Quarter: 2018Q1

REPORT INFORMATION
  Report Type: Spontaneous
  Country: GB (occurrence: GB)
  Receive Date: 20180321
  Receipt Date: 20180321
  Transmission Date: 20180509
  Serious: Yes (Other)
  Sender: FDA-Public Use
  Company Number: GB-DRREDDYS-GER/UKI/18/0096848

PATIENT
  Age: 8 Year
  Sex: Female
  Weight: 25.4 kg

DRUGS (3)
  1. CLENIL MODULITE [Concomitant]
     Active Substance: BECLOMETHASONE DIPROPIONATE
     Indication: PRODUCT USED FOR UNKNOWN INDICATION
     Dosage: 50 (NOW ON 100)
  2. CLENIL MODULITE [Concomitant]
     Active Substance: BECLOMETHASONE DIPROPIONATE
     Indication: PRODUCT USED FOR UNKNOWN INDICATION
     Dosage: 50 (NOW ON 100)
  3. MONTELUKAST [Suspect]
     Active Substance: MONTELUKAST SODIUM
     Indication: ASTHMA
     Dosage: EVERY EVENING
     Route: 048
     Dates: start: 20171122, end: 20171202

REACTIONS (13)
  - Negative thoughts [Not Recovered/Not Resolved]
  - Decreased interest [Not Recovered/Not Resolved]
  - Aggression [Not Recovered/Not Resolved]
  - Mental disorder [Not Recovered/Not Resolved]
  - Paranoia [Not Recovered/Not Resolved]
  - Thinking abnormal [Not Recovered/Not Resolved]
  - Depressed mood [Not Recovered/Not Resolved]
  - Nightmare [Recovering/Resolving]
  - Dissociation [Not Recovered/Not Resolved]
  - Screaming [Not Recovered/Not Resolved]
  - Crying [Not Recovered/Not Resolved]
  - Social avoidant behaviour [Not Recovered/Not Resolved]
  - Mood swings [Not Recovered/Not Resolved]

NARRATIVE: CASE EVENT DATE: 20171122
